FAERS Safety Report 18656735 (Version 1)
Quarter: 2020Q4

REPORT INFORMATION
  Report Type: Spontaneous
  Country: US (occurrence: US)
  Receive Date: 20201223
  Receipt Date: 20201223
  Transmission Date: 20210114
  Serious: Yes (Other)
  Sender: FDA-Public Use
  Company Number: US-PURDUE-USA-2020-0183070

PATIENT
  Sex: Male

DRUGS (5)
  1. DILAUDID [Suspect]
     Active Substance: HYDROMORPHONE HYDROCHLORIDE
     Indication: BACK INJURY
     Dosage: UNK
     Route: 048
  2. HEROIN [Suspect]
     Active Substance: DIAMORPHINE
     Indication: BACK INJURY
     Dosage: UNK
     Route: 065
  3. OXYCONTIN [Suspect]
     Active Substance: OXYCODONE HYDROCHLORIDE
     Indication: BACK INJURY
     Dosage: UNK
     Route: 048
  4. HYDROMORPHONE TABLETS [Suspect]
     Active Substance: HYDROMORPHONE
     Indication: BACK INJURY
     Dosage: UNK
     Route: 048
  5. FENTANYL. [Suspect]
     Active Substance: FENTANYL
     Indication: BACK INJURY
     Dosage: UNK
     Route: 062

REACTIONS (3)
  - Drug dependence [Unknown]
  - Overdose [Unknown]
  - Hepatitis C [Unknown]
